FAERS Safety Report 10022496 (Version 1)
Quarter: 2014Q1

REPORT INFORMATION
  Report Type: Spontaneous
  Country: IT (occurrence: IT)
  Receive Date: 20140319
  Receipt Date: 20140319
  Transmission Date: 20141002
  Serious: Yes (Hospitalization)
  Sender: FDA-Public Use
  Company Number: IT-ACTAVIS-2014-05040

PATIENT
  Age: 86 Year
  Sex: Male

DRUGS (13)
  1. REPAGLINIDE (UNKNOWN) [Suspect]
     Indication: TYPE 2 DIABETES MELLITUS
     Dosage: 3 DF, DAILY
     Route: 048
     Dates: start: 20130101, end: 20140204
  2. METFORAL [Suspect]
     Indication: TYPE 2 DIABETES MELLITUS
     Dosage: 3 DF, DAILY
     Route: 048
     Dates: start: 20130101, end: 20140204
  3. TRIATEC                            /00116401/ [Concomitant]
     Indication: PRODUCT USED FOR UNKNOWN INDICATION
     Dosage: 5 MG, UNK
     Route: 048
  4. CARDURA [Concomitant]
     Indication: PRODUCT USED FOR UNKNOWN INDICATION
     Dosage: 2 MG, 1 POSOLOGICAL UNIT, UNK
     Route: 048
  5. CARDIOASPIRIN [Concomitant]
     Indication: PRODUCT USED FOR UNKNOWN INDICATION
     Dosage: 100 MG, UNK
     Route: 048
  6. LANSOX [Concomitant]
     Indication: PRODUCT USED FOR UNKNOWN INDICATION
     Dosage: 30 MG, UNK
     Route: 048
  7. LASIX                              /00032601/ [Concomitant]
     Indication: PRODUCT USED FOR UNKNOWN INDICATION
     Dosage: 25 MG, UNK
     Route: 048
  8. TRITTICO [Concomitant]
     Indication: PRODUCT USED FOR UNKNOWN INDICATION
     Dosage: 25 MG/ML, 15 DROPS, UNK
     Route: 048
  9. NORVASC [Concomitant]
     Indication: PRODUCT USED FOR UNKNOWN INDICATION
     Dosage: 5 MG, UNK
     Route: 048
  10. NITRO-DUR [Concomitant]
     Indication: PRODUCT USED FOR UNKNOWN INDICATION
     Dosage: 10 MG, DAILY
     Route: 062
  11. MEDROL                             /00049601/ [Concomitant]
     Indication: PRODUCT USED FOR UNKNOWN INDICATION
     Dosage: UNK
     Route: 048
  12. CITALOPRAM [Concomitant]
     Indication: PRODUCT USED FOR UNKNOWN INDICATION
     Dosage: 10 MG, UNK
     Route: 048
  13. AMOXICILLIN CLAVULANIC ACID [Concomitant]
     Indication: PRODUCT USED FOR UNKNOWN INDICATION
     Dosage: UNK
     Route: 048

REACTIONS (2)
  - Hypoglycaemia [Unknown]
  - Dizziness [Unknown]
